FAERS Safety Report 21744609 (Version 1)
Quarter: 2022Q4

REPORT INFORMATION
  Report Type: Spontaneous
  Country: JP (occurrence: JP)
  Receive Date: 20221218
  Receipt Date: 20221218
  Transmission Date: 20230113
  Serious: Yes (Other)
  Sender: FDA-Public Use
  Company Number: JP-STRIDES ARCOLAB LIMITED-2022SP016965

PATIENT
  Age: 38 Year
  Sex: Male

DRUGS (13)
  1. TACROLIMUS [Interacting]
     Active Substance: TACROLIMUS
     Indication: Prophylaxis against graft versus host disease
     Dosage: UNK
     Route: 065
  2. CLARITHROMYCIN [Suspect]
     Active Substance: CLARITHROMYCIN
     Indication: Atypical mycobacterial pneumonia
     Dosage: UNK
     Route: 065
  3. AZACITIDINE [Suspect]
     Active Substance: AZACITIDINE
     Indication: Myelodysplastic syndrome
     Dosage: UNK
     Route: 065
  4. ACLARUBICIN [Suspect]
     Active Substance: ACLARUBICIN
     Indication: Myelodysplastic syndrome
     Dosage: 14 MILLIGRAM/SQ. METER
     Route: 065
  5. CYTARABINE [Interacting]
     Active Substance: CYTARABINE
     Indication: Myelodysplastic syndrome
     Dosage: 20 MILLIGRAM/SQ. METER
     Route: 065
  6. CYTARABINE [Interacting]
     Active Substance: CYTARABINE
     Indication: Bone marrow conditioning regimen
     Dosage: 3 GRAM PER SQUARE METRE (3 G/M2)
     Route: 065
  7. RIFAMPIN [Interacting]
     Active Substance: RIFAMPIN
     Indication: Atypical mycobacterial pneumonia
     Dosage: 600 MILLIGRAM/DAY
     Route: 065
  8. FLUDARABINE [Interacting]
     Active Substance: FLUDARABINE PHOSPHATE
     Indication: Bone marrow conditioning regimen
     Dosage: 30 MILLIGRAM/SQ. METER
     Route: 065
  9. MELPHALAN [Interacting]
     Active Substance: MELPHALAN
     Indication: Bone marrow conditioning regimen
     Dosage: 40 MILLIGRAM/SQ. METER
     Route: 065
  10. ISONIAZID [Concomitant]
     Active Substance: ISONIAZID
     Indication: Atypical mycobacterial pneumonia
     Dosage: 300 MILLIGRAM PER DAY
     Route: 065
  11. ETHAMBUTOL [Concomitant]
     Active Substance: ETHAMBUTOL HYDROCHLORIDE
     Indication: Atypical mycobacterial pneumonia
     Dosage: 750 MILLIGRAM PER DAY
     Route: 065
  12. AMIKACIN [Concomitant]
     Active Substance: AMIKACIN
     Indication: Antibiotic therapy
     Dosage: UNK
     Route: 065
  13. IMIPENEM AND CILASTATIN [Concomitant]
     Active Substance: CILASTATIN SODIUM\IMIPENEM
     Indication: Antibiotic therapy
     Dosage: UNK
     Route: 065

REACTIONS (3)
  - Drug interaction [Unknown]
  - Encephalitis [Recovered/Resolved]
  - Off label use [Unknown]
